FAERS Safety Report 5508395-2 (Version None)
Quarter: 2007Q4

REPORT INFORMATION
  Report Type: 
  Country: None (occurrence: None)
  Receive Date: 20071107
  Receipt Date: 20071031
  Transmission Date: 20080405
  Serious: Yes (Hospitalization, Other)
  Sender: FDA-Public Use
  Company Number: PHBS2007GB18282

PATIENT
  Age: 55 Year
  Sex: Female

DRUGS (5)
  1. IMIPRAMINE [Suspect]
     Indication: DEPRESSION
     Route: 065
     Dates: end: 20050701
  2. IMIPRAMINE [Suspect]
     Dosage: 25 MG/D
     Route: 065
     Dates: start: 20060509, end: 20060707
  3. CITALOPRAM HYDROBROMIDE [Suspect]
     Indication: DEPRESSION
     Dosage: 20 MG/D
     Route: 065
     Dates: start: 20050701
  4. MIRTAZEPAM [Concomitant]
     Indication: DEPRESSION
     Dosage: 30 MG/D
     Route: 065
     Dates: start: 20060707
  5. RADIOACTIVE IODINE TREATMENT [Concomitant]
     Indication: HYPERTHYROIDISM
     Route: 065

REACTIONS (10)
  - ANGLE CLOSURE GLAUCOMA [None]
  - ANXIETY DISORDER [None]
  - HEADACHE [None]
  - HYPERTHYROIDISM [None]
  - INTRAOCULAR PRESSURE INCREASED [None]
  - IRIDOTOMY [None]
  - LASER THERAPY [None]
  - MYDRIASIS [None]
  - PUPILLARY REFLEX IMPAIRED [None]
  - VISION BLURRED [None]
